FAERS Safety Report 14314934 (Version 2)
Quarter: 2017Q4

REPORT INFORMATION
  Report Type: Spontaneous
  Country: JP (occurrence: JP)
  Receive Date: 20171221
  Receipt Date: 20171222
  Transmission Date: 20180321
  Serious: Yes (Death, Hospitalization)
  Sender: FDA-Public Use
  Company Number: JP-ELI_LILLY_AND_COMPANY-JP201712008920

PATIENT
  Age: 65 Year
  Sex: Male

DRUGS (2)
  1. CYRAMZA [Suspect]
     Active Substance: RAMUCIRUMAB
     Indication: GASTRIC CANCER
     Dosage: 8 MG/KG, OTHER
     Route: 042
     Dates: start: 20171023, end: 20171205
  2. PACLITAXEL. [Suspect]
     Active Substance: PACLITAXEL
     Indication: GASTRIC CANCER
     Dosage: UNK
     Route: 042
     Dates: start: 20171023, end: 20171205

REACTIONS (7)
  - Dehydration [Unknown]
  - Hypothermia [Unknown]
  - Neutropenia [Unknown]
  - Blood potassium increased [Unknown]
  - Aspartate aminotransferase increased [Unknown]
  - Alanine aminotransferase increased [Unknown]
  - Malignant neoplasm progression [Fatal]
